FAERS Safety Report 13750785 (Version 1)
Quarter: 2017Q3

REPORT INFORMATION
  Report Type: Spontaneous
  Country: US (occurrence: US)
  Receive Date: 20170713
  Receipt Date: 20170713
  Transmission Date: 20171127
  Serious: No
  Sender: FDA-Public Use
  Company Number: US-ASTELLAS-2017US007347

PATIENT
  Sex: Female

DRUGS (2)
  1. MYRBETRIQ [Suspect]
     Active Substance: MIRABEGRON
     Indication: HYPERTONIC BLADDER
     Route: 048
  2. MYRBETRIQ [Suspect]
     Active Substance: MIRABEGRON
     Route: 048

REACTIONS (4)
  - Micturition urgency [Recovered/Resolved]
  - Nocturia [Recovering/Resolving]
  - Pollakiuria [Recovering/Resolving]
  - Drug effect incomplete [Unknown]
